FAERS Safety Report 23494275 (Version 2)
Quarter: 2024Q1

REPORT INFORMATION
  Report Type: Other
  Country: CN (occurrence: None)
  Receive Date: 20240207
  Receipt Date: 20240215
  Transmission Date: 20240410
  Serious: Yes (Other)
  Sender: FDA-Public Use
  Company Number: CN-ROCHE-3503680

PATIENT

DRUGS (3)
  1. AVASTIN [Suspect]
     Active Substance: BEVACIZUMAB
     Indication: Glioblastoma
     Route: 042
  2. TEMOZOLOMIDE [Suspect]
     Active Substance: TEMOZOLOMIDE
     Indication: Glioblastoma
     Dosage: 5 DAYS EVERY 28 DAYS FOR FOUR WEEKS UNTIL PROGRESSION, WORSENING OR UNACCEPTABLE TOXICITY
     Route: 048
  3. SINTILIMAB [Suspect]
     Active Substance: SINTILIMAB
     Indication: Glioblastoma
     Route: 048

REACTIONS (3)
  - Alanine aminotransferase increased [Recovered/Resolved]
  - Leukopenia [Unknown]
  - Blood thyroid stimulating hormone increased [Unknown]
